FAERS Safety Report 9280331 (Version 1)
Quarter: 2013Q2

REPORT INFORMATION
  Report Type: Spontaneous
  Country: US (occurrence: US)
  Receive Date: 20130509
  Receipt Date: 20130509
  Transmission Date: 20140414
  Serious: Yes (Hospitalization, Other)
  Sender: FDA-Public Use
  Company Number: US-ASTELLAS-2013US004803

PATIENT
  Age: 83 Year
  Sex: Male

DRUGS (3)
  1. XTANDI [Suspect]
     Indication: PRODUCT USED FOR UNKNOWN INDICATION
     Dosage: 160 MG, UID/QD
     Route: 065
     Dates: start: 20121221
  2. XTANDI [Suspect]
     Dosage: 120 MG, UID/QD
     Route: 065
  3. XTANDI [Suspect]
     Dosage: 80 MG, UID/QD
     Route: 065

REACTIONS (5)
  - Hospitalisation [Unknown]
  - Chest pain [Unknown]
  - Treatment noncompliance [Unknown]
  - Flatulence [Unknown]
  - Diarrhoea [Unknown]
